FAERS Safety Report 23647372 (Version 1)
Quarter: 2024Q1

REPORT INFORMATION
  Report Type: Spontaneous
  Country: JP (occurrence: JP)
  Receive Date: 20240319
  Receipt Date: 20240319
  Transmission Date: 20240410
  Serious: Yes (Life-Threatening, Hospitalization, Other)
  Sender: FDA-Public Use
  Company Number: JP-MLMSERVICE-20231228-4741199-2

PATIENT
  Age: 70 Year
  Sex: Male
  Weight: 52.8 kg

DRUGS (10)
  1. CARBIDOPA\LEVODOPA [Suspect]
     Active Substance: CARBIDOPA\LEVODOPA
     Indication: Parkinson^s disease
     Dosage: 1275 MG/DAY WAS STARTED VIA NASOJEJUNAL TUBE
  2. DIMETHICONE [Concomitant]
     Active Substance: DIMETHICONE
     Dosage: 80 MILLIGRAM, QD
     Route: 048
  3. AMBROXOL HYDROCHLORIDE [Concomitant]
     Active Substance: AMBROXOL HYDROCHLORIDE
     Dosage: 15 MILLIGRAM, QD
     Route: 048
  4. MAGNESIUM OXIDE [Concomitant]
     Active Substance: MAGNESIUM OXIDE
     Dosage: 1980 MILLIGRAM, QD
     Route: 048
  5. DANTROLENE [Concomitant]
     Active Substance: DANTROLENE
     Indication: Parkinsonism hyperpyrexia syndrome
     Dosage: UNK
  6. MIRABEGRON [Concomitant]
     Active Substance: MIRABEGRON
     Dosage: 50 MILLIGRAM, QD
     Route: 048
  7. CLONAZEPAM [Concomitant]
     Active Substance: CLONAZEPAM
     Dosage: 0.5 MILLIGRAM, QD
     Route: 048
  8. TAMSULOSIN [Concomitant]
     Active Substance: TAMSULOSIN
     Dosage: 0.2 MILLIGRAM, QD
     Route: 048
  9. MIDODRINE [Concomitant]
     Active Substance: MIDODRINE
     Dosage: 4 MILLIGRAM, QD
     Route: 048
  10. RAMELTEON [Concomitant]
     Active Substance: RAMELTEON
     Dosage: 8 MILLIGRAM, QD
     Route: 048

REACTIONS (13)
  - Type II hypersensitivity [Recovering/Resolving]
  - Apnoeic attack [Recovering/Resolving]
  - Atrial flutter [Recovering/Resolving]
  - Thrombocytopenia [Recovering/Resolving]
  - Acute kidney injury [Recovering/Resolving]
  - Parkinsonism hyperpyrexia syndrome [Recovering/Resolving]
  - Haemorrhagic diathesis [Recovering/Resolving]
  - Type IV hypersensitivity reaction [Recovering/Resolving]
  - Disseminated intravascular coagulation [Recovered/Resolved]
  - Pneumonia [Recovered/Resolved]
  - Respiratory disorder [Recovering/Resolving]
  - Cardiac arrest [Recovered/Resolved]
  - Septic shock [Recovered/Resolved]
